FAERS Safety Report 8484294-1 (Version None)
Quarter: 2012Q3

REPORT INFORMATION
  Report Type: 
  Country: None (occurrence: None)
  Receive Date: 20120703
  Receipt Date: 20120621
  Transmission Date: 20120928
  Serious: Yes (Other)
  Sender: FDA-Public Use
  Company Number: US-ENDO PHARMACEUTICALS INC.-OPCR20121473

PATIENT
  Sex: Male
  Weight: 106.69 kg

DRUGS (1)
  1. OPANA ER [Suspect]
     Indication: PAIN
     Route: 048
     Dates: start: 20120501, end: 20120101

REACTIONS (2)
  - PHARYNGEAL OEDEMA [None]
  - FURUNCLE [None]
